FAERS Safety Report 5905080-X (Version None)
Quarter: 2008Q4

REPORT INFORMATION
  Report Type: 
  Country: None (occurrence: None)
  Receive Date: 20081001
  Receipt Date: 20080924
  Transmission Date: 20090506
  Serious: Yes (Hospitalization, Other)
  Sender: FDA-Public Use
  Company Number: CA-ABBOTT-08P-028-0452953-00

PATIENT
  Sex: Female
  Weight: 61.29 kg

DRUGS (6)
  1. HUMIRA [Suspect]
     Indication: RHEUMATOID ARTHRITIS
     Route: 058
     Dates: start: 20080111
  2. HUMIRA [Suspect]
     Route: 058
     Dates: start: 20080904
  3. PREDNISONE [Concomitant]
     Indication: DRUG USE FOR UNKNOWN INDICATION
     Dosage: 5 MG DAILY
     Route: 048
  4. CELECOXIB [Concomitant]
     Indication: DRUG USE FOR UNKNOWN INDICATION
     Dosage: 200 MG DAILY
     Route: 048
  5. METHOTREXATE [Concomitant]
     Indication: DRUG USE FOR UNKNOWN INDICATION
     Route: 048
  6. FOLIC ACID [Concomitant]
     Indication: DRUG USE FOR UNKNOWN INDICATION
     Dosage: 1 MG DAILY
     Route: 048

REACTIONS (5)
  - BUNION [None]
  - INCISION SITE ERYTHEMA [None]
  - INCISION SITE PAIN [None]
  - POSTOPERATIVE WOUND INFECTION [None]
  - SKIN DISCOLOURATION [None]
